APPROVED DRUG PRODUCT: LOPERAMIDE HYDROCHLORIDE
Active Ingredient: LOPERAMIDE HYDROCHLORIDE
Strength: 2MG
Dosage Form/Route: CAPSULE;ORAL
Application: A215001 | Product #001 | TE Code: AB
Applicant: EDENBRIDGE PHARMACEUTICALS LLC
Approved: Oct 6, 2021 | RLD: No | RS: No | Type: RX